FAERS Safety Report 16607638 (Version 2)
Quarter: 2019Q3

REPORT INFORMATION
  Report Type: Spontaneous
  Country: US (occurrence: US)
  Receive Date: 20190722
  Receipt Date: 20190917
  Transmission Date: 20191004
  Serious: No
  Sender: FDA-Public Use
  Company Number: US-ALK-ABELLO A/S-2019AA002258

PATIENT

DRUGS (36)
  1. STAE BULK 302 AMBROSIA ARTEMISIIFOLIA [Suspect]
     Active Substance: AMBROSIA ARTEMISIIFOLIA POLLEN
     Indication: PRODUCT USED FOR UNKNOWN INDICATION
     Dosage: UNK
  2. TAE BULK 402 (ALTERNARIA ALTERNATA) [Suspect]
     Active Substance: ALTERNARIA ALTERNATA
     Indication: PRODUCT USED FOR UNKNOWN INDICATION
     Dosage: UNK
  3. TAE BULK 1199 (ARTEMISIA TRIDENTATA) [Suspect]
     Active Substance: ARTEMISIA TRIDENTATA POLLEN
     Indication: PRODUCT USED FOR UNKNOWN INDICATION
     Dosage: UNK
  4. TAE BULK 1325 (EPICOCCUM NIGRUM) [Suspect]
     Active Substance: EPICOCCUM NIGRUM
     Indication: PRODUCT USED FOR UNKNOWN INDICATION
  5. RHIZOPUS NIGRICANS [Suspect]
     Active Substance: RHIZOPUS STOLONIFER
     Indication: PRODUCT USED FOR UNKNOWN INDICATION
  6. TAE BULK 362 AMARANTHUS RETROFLEXUS [Suspect]
     Active Substance: AMARANTHUS RETROFLEXUS POLLEN
     Indication: PRODUCT USED FOR UNKNOWN INDICATION
     Dosage: UNK
  7. TAE BULK 158 (POPULUS DELTOIDS) [Suspect]
     Active Substance: POPULUS DELTOIDES POLLEN
     Indication: PRODUCT USED FOR UNKNOWN INDICATION
     Dosage: UNK
  8. TAE BULK 165 (CARYA ILLINOINENSIS) [Suspect]
     Active Substance: CARYA ILLINOINENSIS POLLEN
     Indication: PRODUCT USED FOR UNKNOWN INDICATION
     Dosage: UNK
  9. TAE BULK 312 (ARTEMISIA VULGARIS) [Suspect]
     Active Substance: ARTEMISIA VULGARIS POLLEN
     Indication: PRODUCT USED FOR UNKNOWN INDICATION
     Dosage: UNK
  10. STAE BULK 555 (FELIS DOMESTICUS) [Suspect]
     Active Substance: FELIS CATUS HAIR
     Indication: PRODUCT USED FOR UNKNOWN INDICATION
  11. TAE BULK 366 IVA CILIATA [Suspect]
     Active Substance: IVA ANNUA POLLEN
     Indication: PRODUCT USED FOR UNKNOWN INDICATION
  12. TAE BULK 361 (SALSOLA KALI) [Suspect]
     Active Substance: SALSOLA KALI POLLEN
     Indication: PRODUCT USED FOR UNKNOWN INDICATION
     Dosage: UNK
  13. TAE BULK 157 ACER NEGUNDO [Suspect]
     Active Substance: ACER NEGUNDO POLLEN
     Indication: PRODUCT USED FOR UNKNOWN INDICATION
  14. TAE BULK 168 FRAXINUS AMERICANA [Suspect]
     Active Substance: FRAXINUS AMERICANA POLLEN
     Indication: PRODUCT USED FOR UNKNOWN INDICATION
  15. TAE BULK 166 (PROSOPIS JULIFLORA POLLEN) [Suspect]
     Active Substance: PROSOPIS JULIFLORA POLLEN
     Indication: PRODUCT USED FOR UNKNOWN INDICATION
  16. TAE BULK 1141 (ARECASTRUM ROMANZOFFIANUM) [Suspect]
     Active Substance: SYAGRUS ROMANZOFFIANA POLLEN
     Indication: PRODUCT USED FOR UNKNOWN INDICATION
     Dosage: UNK
  17. TAE BULK 1152 (JUNIPERUS ASCHEI) [Suspect]
     Active Substance: JUNIPERUS ASHEI POLLEN
     Indication: PRODUCT USED FOR UNKNOWN INDICATION
  18. TAE BULK 122 (LIGUSTRUM VULGARE) [Suspect]
     Active Substance: LIGUSTRUM VULGARE POLLEN
     Indication: PRODUCT USED FOR UNKNOWN INDICATION
  19. STAE BULK 503 (DERMATOPHAGOIDES PTERONYSSINUS) [Suspect]
     Active Substance: DERMATOPHAGOIDES PTERONYSSINUS
     Indication: PRODUCT USED FOR UNKNOWN INDICATION
  20. TAE BULK 419 (FUSARIUM ROSEUM) [Suspect]
     Active Substance: GIBBERELLA ZEAE
     Indication: PRODUCT USED FOR UNKNOWN INDICATION
     Dosage: UNK
  21. TAE BULK 416 (CLADOSPORIUM CLADOSPORIOIDES) [Suspect]
     Active Substance: CLADOSPORIUM CLADOSPORIOIDES
     Indication: PRODUCT USED FOR UNKNOWN INDICATION
     Dosage: UNK
  22. TAE BULK 1327 (MUCOR PLUMBEUS) [Suspect]
     Active Substance: MUCOR PLUMBEUS
     Indication: PRODUCT USED FOR UNKNOWN INDICATION
  23. TAE BULK 265 (521 ANAS SPP.\522 ANSER SPP.\523 GALLUS SPP.) [Suspect]
     Active Substance: ANAS PLATYRHYNCHOS FEATHER\ANSER ANSER FEATHER\GALLUS GALLUS FEATHER
     Indication: PRODUCT USED FOR UNKNOWN INDICATION
     Dosage: UNK
  24. TAE BULK 367 (KOCHIA SCOPARIA) [Suspect]
     Active Substance: BASSIA SCOPARIA POLLEN
     Indication: PRODUCT USED FOR UNKNOWN INDICATION
  25. TAE BULK 358 (RUMEX ACETOSELLA) [Suspect]
     Active Substance: RUMEX ACETOSELLA POLLEN
     Indication: PRODUCT USED FOR UNKNOWN INDICATION
     Dosage: UNK
  26. PENICILLIUM NOTATUM [Suspect]
     Active Substance: PENICILLIUM CHRYSOGENUM VAR. CHRYSOGENUM
     Indication: PRODUCT USED FOR UNKNOWN INDICATION
     Dosage: UNK
  27. TAE BULK 156 (ULMUS AMERICANA) [Suspect]
     Active Substance: ULMUS AMERICANA POLLEN
     Indication: PRODUCT USED FOR UNKNOWN INDICATION
     Dosage: UNK
  28. STAE BULK 504 (DERMATOPHAGOIDES FARINAE) [Suspect]
     Active Substance: DERMATOPHAGOIDES FARINAE
     Indication: PRODUCT USED FOR UNKNOWN INDICATION
  29. TAE BULK 1151 (JUGLANS NIGRA) [Suspect]
     Active Substance: JUGLANS NIGRA POLLEN
     Indication: PRODUCT USED FOR UNKNOWN INDICATION
     Dosage: UNK
  30. TAE BULK 405 (ASPERGILLUS FUMIGATUS) [Suspect]
     Active Substance: ASPERGILLUS FUMIGATUS
     Indication: PRODUCT USED FOR UNKNOWN INDICATION
     Dosage: UNK
  31. TAE BULK 413 (CANDIDA ALBICANS) [Suspect]
     Active Substance: CANDIDA ALBICANS
     Indication: PRODUCT USED FOR UNKNOWN INDICATION
     Dosage: UNK
  32. TAE BULK 342 (PLANTAGO LANCEOLATA) [Suspect]
     Active Substance: PLANTAGO LANCEOLATA POLLEN
     Indication: PRODUCT USED FOR UNKNOWN INDICATION
     Dosage: UNK
  33. TAE BULK 1326 (SPONDYLOCLADIUM ATROVIRENS) [Suspect]
     Active Substance: HELMINTHOSPORIUM SOLANI
     Indication: PRODUCT USED FOR UNKNOWN INDICATION
  34. TAE BULK 153 (QUERCUS ALBA) [Suspect]
     Active Substance: QUERCUS ALBA POLLEN
     Indication: PRODUCT USED FOR UNKNOWN INDICATION
  35. TAE BULK 553 (CANIS LUPUS FAMILIARIS) [Suspect]
     Active Substance: CANIS LUPUS FAMILIARIS SKIN
     Indication: PRODUCT USED FOR UNKNOWN INDICATION
     Dosage: UNK
  36. TAE BULK 322 CHENOPODIUM ALBUM [Suspect]
     Active Substance: CHENOPODIUM ALBUM POLLEN
     Indication: PRODUCT USED FOR UNKNOWN INDICATION
     Dosage: UNK

REACTIONS (3)
  - Swelling [Unknown]
  - Pruritus [Unknown]
  - Erythema [Unknown]
